FAERS Safety Report 8144015-9 (Version None)
Quarter: 2012Q1

REPORT INFORMATION
  Report Type: 
  Country: None (occurrence: None)
  Receive Date: 20120217
  Receipt Date: 20120217
  Transmission Date: 20120608
  Serious: No
  Sender: FDA-Public Use
  Company Number: None

PATIENT
  Age: 53 Year
  Sex: Female
  Weight: 145.14 kg

DRUGS (1)
  1. VENLAFAXINE [Suspect]
     Indication: MENOPAUSAL SYMPTOMS
     Dosage: 225 MG
     Route: 048

REACTIONS (5)
  - HOT FLUSH [None]
  - FATIGUE [None]
  - PRODUCT SUBSTITUTION ISSUE [None]
  - MOOD ALTERED [None]
  - NIGHT SWEATS [None]
